FAERS Safety Report 13333681 (Version 1)
Quarter: 2017Q1

REPORT INFORMATION
  Report Type: Spontaneous
  Country: MA (occurrence: MA)
  Receive Date: 20170314
  Receipt Date: 20170314
  Transmission Date: 20170428
  Serious: Yes (Death)
  Sender: FDA-Public Use
  Company Number: MA-PFIZER INC-2016587206

PATIENT
  Sex: Male

DRUGS (2)
  1. TYGACIL [Suspect]
     Active Substance: TIGECYCLINE
     Indication: PNEUMONIA
     Dosage: UNK
  2. TYGACIL [Suspect]
     Active Substance: TIGECYCLINE
     Indication: ACINETOBACTER INFECTION

REACTIONS (1)
  - Drug ineffective for unapproved indication [Fatal]
